FAERS Safety Report 9181653 (Version 1)
Quarter: 2013Q1

REPORT INFORMATION
  Report Type: Spontaneous
  Country: GB (occurrence: GB)
  Receive Date: 20130322
  Receipt Date: 20130322
  Transmission Date: 20140127
  Serious: Yes (Disabling, Other)
  Sender: FDA-Public Use
  Company Number: GB-JNJFOC-20090802739

PATIENT
  Age: 49 Year
  Sex: Female

DRUGS (6)
  1. MOTRIN [Suspect]
     Indication: DIABETES MELLITUS
     Route: 048
     Dates: start: 20020205, end: 20020215
  2. AVANDIA [Interacting]
     Indication: TYPE 2 DIABETES MELLITUS
     Route: 048
     Dates: start: 20010513, end: 20020315
  3. LISINOPRIL [Concomitant]
     Indication: HYPERTENSION
     Route: 065
     Dates: start: 19980420
  4. TIMOLOL [Concomitant]
     Indication: GLAUCOMA
     Route: 047
     Dates: start: 1994
  5. METFORMIN [Concomitant]
     Indication: DIABETES MELLITUS
     Route: 048
     Dates: start: 20000128
  6. EPOGAM [Concomitant]
     Indication: ECZEMA
     Route: 048
     Dates: start: 1994

REACTIONS (4)
  - Weight increased [Recovering/Resolving]
  - Oedema [Recovering/Resolving]
  - Dyspnoea [Recovering/Resolving]
  - Drug interaction [Unknown]
